FAERS Safety Report 4349790-7 (Version None)
Quarter: 2004Q2

REPORT INFORMATION
  Report Type: 
  Country: None (occurrence: None)
  Receive Date: 20040428
  Receipt Date: 20040428
  Transmission Date: 20050107
  Serious: No
  Sender: FDA-Public Use
  Company Number: None

PATIENT
  Age: 50 Year
  Sex: Female
  Weight: 71.2147 kg

DRUGS (1)
  1. VALIUM [Suspect]
     Indication: ANXIETY
     Dosage: 5 MG PO
     Route: 048

REACTIONS (4)
  - ANXIETY [None]
  - BURNING SENSATION [None]
  - MUSCLE SPASMS [None]
  - PRURITUS [None]
